FAERS Safety Report 13259869 (Version 1)
Quarter: 2017Q1

REPORT INFORMATION
  Report Type: Spontaneous
  Country: US (occurrence: US)
  Receive Date: 20170222
  Receipt Date: 20170222
  Transmission Date: 20170428
  Serious: Yes (Other)
  Sender: FDA-Public Use
  Company Number: US-PFIZER INC-2017066200

PATIENT
  Sex: Male

DRUGS (1)
  1. LEVOXYL [Suspect]
     Active Substance: LEVOTHYROXINE SODIUM
     Indication: HORMONE REPLACEMENT THERAPY
     Dosage: UNK
     Dates: end: 2017

REACTIONS (10)
  - Weight decreased [Unknown]
  - Autoimmune disorder [Unknown]
  - Tremor [Unknown]
  - Psychomotor hyperactivity [Unknown]
  - Anxiety [Unknown]
  - Nervous system disorder [Unknown]
  - Insomnia [Unknown]
  - Viral infection [Unknown]
  - Incorrect dose administered [Unknown]
  - Drug interaction [Unknown]
